FAERS Safety Report 9768692 (Version 1)
Quarter: 2013Q4

REPORT INFORMATION
  Report Type: Spontaneous
  Country: US (occurrence: US)
  Receive Date: 20131218
  Receipt Date: 20131218
  Transmission Date: 20140711
  Serious: No
  Sender: FDA-Public Use
  Company Number: US-BIOGENIDEC-2013BI096073

PATIENT
  Age: 39 Year
  Sex: Male

DRUGS (1)
  1. AVONEX [Suspect]
     Indication: MULTIPLE SCLEROSIS
     Route: 030
     Dates: start: 20060101, end: 20130412

REACTIONS (4)
  - Fall [Recovered/Resolved]
  - Depression [Not Recovered/Not Resolved]
  - Pain [Recovered/Resolved with Sequelae]
  - Chills [Recovered/Resolved]
